FAERS Safety Report 23193175 (Version 2)
Quarter: 2024Q1

REPORT INFORMATION
  Report Type: Spontaneous
  Country: US (occurrence: US)
  Receive Date: 20231116
  Receipt Date: 20240301
  Transmission Date: 20240410
  Serious: Yes (Life-Threatening, Hospitalization, Other)
  Sender: FDA-Public Use
  Company Number: US-PFIZER INC-PV202300183264

PATIENT
  Age: 26 Year
  Sex: Female

DRUGS (4)
  1. VORICONAZOLE [Suspect]
     Active Substance: VORICONAZOLE
     Indication: Fusarium infection
     Dosage: 6 MG/KG, 2X/DAY, HIGH-DOSE
     Route: 042
  2. AMPHOTERICIN B [Concomitant]
     Active Substance: AMPHOTERICIN B
     Indication: Fusarium infection
     Dosage: 7.5 MG/KG, DAILY
  3. MEROPENEM [Concomitant]
     Active Substance: MEROPENEM
     Indication: Escherichia infection
     Dosage: UNK
  4. MEROPENEM [Concomitant]
     Active Substance: MEROPENEM
     Indication: Haemorrhoids

REACTIONS (2)
  - Therapeutic product effect incomplete [Unknown]
  - Hallucination [Recovering/Resolving]
